FAERS Safety Report 5309799-3 (Version None)
Quarter: 2007Q2

REPORT INFORMATION
  Report Type: 
  Country: None (occurrence: None)
  Receive Date: 20070427
  Receipt Date: 20060629
  Transmission Date: 20071010
  Serious: No
  Sender: FDA-Public Use
  Company Number: US-GLAXOSMITHKLINE-A0610768A

PATIENT
  Age: 18 Month
  Sex: Female

DRUGS (2)
  1. ZOFRAN [Suspect]
     Indication: NAUSEA
     Dosage: 4MG PER DAY
     Route: 048
     Dates: start: 20060629, end: 20060629
  2. NO CONCURRENT MEDICATION [Concomitant]

REACTIONS (5)
  - CONFUSIONAL STATE [None]
  - EYE DISORDER [None]
  - INDIFFERENCE [None]
  - IRRITABILITY [None]
  - SCREAMING [None]
